FAERS Safety Report 4840597-0 (Version None)
Quarter: 2005Q4

REPORT INFORMATION
  Report Type: 
  Country: None (occurrence: None)
  Receive Date: 20051125
  Receipt Date: 20051116
  Transmission Date: 20060501
  Serious: Yes (Hospitalization)
  Sender: FDA-Public Use
  Company Number: 200510575BYL

PATIENT
  Age: 92 Year
  Sex: Female

DRUGS (1)
  1. GLUCOBAY [Suspect]
     Indication: DIABETES MELLITUS
     Dosage: 150 MG, TOTAL DAILY, ORAL
     Route: 048
     Dates: start: 20031104, end: 20051018

REACTIONS (2)
  - FEELING ABNORMAL [None]
  - HYPOGLYCAEMIA [None]
